FAERS Safety Report 24691181 (Version 1)
Quarter: 2024Q4

REPORT INFORMATION
  Report Type: Spontaneous
  Country: US (occurrence: None)
  Receive Date: 20241202
  Receipt Date: 20241202
  Transmission Date: 20250115
  Serious: Yes (Other)
  Sender: Public
  Company Number: None

PATIENT
  Age: 30 Year
  Sex: Male
  Weight: 76.05 kg

DRUGS (1)
  1. TERBINAFINE [Suspect]
     Active Substance: TERBINAFINE\TERBINAFINE HYDROCHLORIDE
     Indication: Onychomycosis
     Dosage: 250 MG DAILY ORAL
     Route: 048
     Dates: start: 20240923, end: 20241115

REACTIONS (3)
  - Ageusia [None]
  - Anosmia [None]
  - Salivary hypersecretion [None]

NARRATIVE: CASE EVENT DATE: 20241115
